FAERS Safety Report 9891028 (Version 1)
Quarter: 2014Q1

REPORT INFORMATION
  Report Type: Spontaneous
  Country: US (occurrence: None)
  Receive Date: 20140211
  Receipt Date: 20140211
  Transmission Date: 20141002
  Serious: Yes (Other)
  Sender: FDA-Public Use
  Company Number: None

PATIENT
  Age: 71 Year
  Sex: Female
  Weight: 72.58 kg

DRUGS (2)
  1. CRESTOR 5 MG [Suspect]
     Indication: BLOOD CHOLESTEROL INCREASED
     Dosage: 2.5-5MGM ?+EVERY DAY?EVERY DAY?BY MOUTH?
     Route: 048
  2. ZETIA [Suspect]

REACTIONS (3)
  - Influenza [None]
  - Pain [None]
  - Pain [None]
